FAERS Safety Report 16936459 (Version 1)
Quarter: 2019Q4

REPORT INFORMATION
  Report Type: Spontaneous
  Country: US (occurrence: US)
  Receive Date: 20190828
  Receipt Date: 20190828
  Transmission Date: 20200122
  Serious: Yes (Disabling)
  Sender: FDA-Public Use
  Company Number: None

PATIENT
  Age: 45 Year
  Sex: Female
  Weight: 62.6 kg

DRUGS (1)
  1. XOFLUZA [Suspect]
     Active Substance: BALOXAVIR MARBOXIL
     Indication: INFLUENZA
     Route: 048
     Dates: start: 20190506, end: 20190506

REACTIONS (12)
  - Vulvovaginal pruritus [None]
  - Formication [None]
  - Paraesthesia [None]
  - Erythema [None]
  - Vulvovaginal erythema [None]
  - Vulvovaginal disorder [None]
  - Drug ineffective [None]
  - Anxiety [None]
  - Insomnia [None]
  - Vulvovaginal burning sensation [None]
  - Burning sensation [None]
  - Pruritus [None]

NARRATIVE: CASE EVENT DATE: 20190507
